FAERS Safety Report 19721105 (Version 1)
Quarter: 2021Q3

REPORT INFORMATION
  Report Type: Spontaneous
  Country: US (occurrence: US)
  Receive Date: 20210819
  Receipt Date: 20210819
  Transmission Date: 20211014
  Serious: No
  Sender: FDA-Public Use
  Company Number: US-PFIZER INC-2021424045

PATIENT
  Age: 65 Year
  Sex: Female

DRUGS (3)
  1. RUXIENCE [Suspect]
     Active Substance: RITUXIMAB-PVVR
     Indication: RHEUMATOID ARTHRITIS
     Dosage: UNK
  2. RITUXAN [Concomitant]
     Active Substance: RITUXIMAB
     Dosage: UNK
  3. REMICADE [Concomitant]
     Active Substance: INFLIXIMAB
     Dosage: UNK

REACTIONS (5)
  - Vertigo [Unknown]
  - Degenerative bone disease [Unknown]
  - Dizziness [Unknown]
  - Fibromyalgia [Unknown]
  - Arthropathy [Unknown]
